FAERS Safety Report 17348069 (Version 1)
Quarter: 2020Q1

REPORT INFORMATION
  Report Type: Report from Study
  Country: US (occurrence: US)
  Receive Date: 20200129
  Receipt Date: 20200129
  Transmission Date: 20200409
  Serious: No
  Sender: FDA-Public Use
  Company Number: US-EXELIXIS-CABO-19023649

PATIENT
  Sex: Male

DRUGS (1)
  1. COMETRIQ [Suspect]
     Active Substance: CABOZANTINIB S-MALATE
     Indication: THYROID CANCER
     Dosage: 140 MG, QD (1 X 80 + 3 X 20MG, AM, WITHOUT FOOD)
     Route: 048
     Dates: start: 20190826

REACTIONS (2)
  - Pain in extremity [Unknown]
  - Blister [Unknown]
